FAERS Safety Report 10099081 (Version 1)
Quarter: 2014Q2

REPORT INFORMATION
  Report Type: Spontaneous
  Country: US (occurrence: None)
  Receive Date: 20140422
  Receipt Date: 20140422
  Transmission Date: 20141212
  Serious: No
  Sender: FDA-Public Use
  Company Number: None

PATIENT
  Age: 63 Year
  Sex: Male
  Weight: 70.31 kg

DRUGS (1)
  1. METHOCARBAMOL [Suspect]
     Indication: BACK PAIN
     Dosage: 1 TAB THREE TIMES DAILY TAKEN BY MOUTH
     Route: 048
     Dates: start: 20140421, end: 20140421

REACTIONS (5)
  - Gait disturbance [None]
  - Anxiety [None]
  - Incoherent [None]
  - Drug ineffective [None]
  - Dissociation [None]
